FAERS Safety Report 7729514 (Version 2)
Quarter: 2014Q1

REPORT INFORMATION
  Report Type: Spontaneous
  Country: DE (occurrence: DE)
  Receive Date: 20101222
  Receipt Date: 20140110
  Transmission Date: 20141002
  Serious: Yes (Other)
  Sender: FDA-Public Use
  Company Number: PHHY2010DE86746

PATIENT
  Age: 7 Year
  Sex: Female

DRUGS (11)
  1. METHOTREXATE [Suspect]
     Indication: ACUTE MYELOID LEUKAEMIA
     Dosage: 1000 MG/M2, UNK
     Route: 042
  2. METHOTREXATE [Suspect]
     Dosage: 10 TO 12 MG, UNK
     Route: 037
  3. PREDNISONE [Suspect]
     Dosage: 60 MG/M2, 50 PERCENT
     Route: 048
  4. VINCRISTINE [Suspect]
     Dosage: 1.5 MG/M2, 50 PERCENT
  5. CYTARABINE [Suspect]
     Dosage: 75 MG/M2, 50 PERCENT
  6. DAUNORUBICIN [Suspect]
     Dosage: 30 MG/M2, 50 PERCENT
  7. ASPARAGINASE [Suspect]
     Dosage: 5000 IE/M2, 50 PERCENT
  8. MERCAPTOPURINE [Suspect]
     Dosage: 60 MG/M2, 50 PERCENT
  9. MERCAPTOPURINE [Suspect]
     Dosage: 10 TO 12 MG, UNK
     Route: 037
  10. MERCAPTOPURINE [Suspect]
     Dosage: 25 MG/M2, UNK
  11. CYCLOPHOSPHAMIDE [Suspect]
     Dosage: 1000 MG/M2, UNK

REACTIONS (2)
  - Gastroenteritis [Unknown]
  - Neutropenia [Unknown]
